FAERS Safety Report 8843616 (Version 1)
Quarter: 2012Q4

REPORT INFORMATION
  Report Type: 
  Country: US (occurrence: US)
  Receive Date: 20121016
  Receipt Date: 20121016
  Transmission Date: 20130627
  Serious: Yes (Hospitalization, Other)
  Sender: FDA-Public Use
  Company Number: US-ROCHE-GNE091095

PATIENT
  Age: 2 Year
  Sex: Female
  Weight: 10.21 kg

DRUGS (1)
  1. NUTROPIN AQ [Suspect]
     Indication: TURNER^S SYNDROME
     Route: 058
     Dates: start: 19980513, end: 19980624

REACTIONS (8)
  - Influenza like illness [Unknown]
  - Vomiting [Recovered/Resolved]
  - Nausea [Unknown]
  - Dehydration [Unknown]
  - Hyperglycaemia [Unknown]
  - Papilloedema [Unknown]
  - Asthenia [Unknown]
  - Headache [Unknown]
